FAERS Safety Report 18817730 (Version 3)
Quarter: 2021Q3

REPORT INFORMATION
  Report Type: Report from Study
  Country: AU (occurrence: AU)
  Receive Date: 20210201
  Receipt Date: 20210814
  Transmission Date: 20211014
  Serious: Yes (Other)
  Sender: FDA-Public Use
  Company Number: NVSC2021AU013778

PATIENT
  Sex: Male

DRUGS (1)
  1. BEOVU [Suspect]
     Active Substance: BROLUCIZUMAB-DBLL
     Indication: PRODUCT USED FOR UNKNOWN INDICATION
     Dosage: UNK
     Route: 065
     Dates: start: 20201116

REACTIONS (6)
  - Vitritis [Unknown]
  - Vision blurred [Unknown]
  - Visual acuity reduced [Recovering/Resolving]
  - Subretinal fluid [Not Recovered/Not Resolved]
  - Eye pain [Unknown]
  - Ocular hyperaemia [Unknown]
